FAERS Safety Report 11127313 (Version 1)
Quarter: 2015Q2

REPORT INFORMATION
  Report Type: Report from Study
  Country: US (occurrence: None)
  Receive Date: 20150519
  Receipt Date: 20150519
  Transmission Date: 20150821
  Serious: Yes (Hospitalization, Disabling, Other)
  Sender: FDA-Public Use
  Company Number: 2015-11277

PATIENT
  Age: 73 Year
  Sex: Female

DRUGS (1)
  1. EYLEA [Suspect]
     Active Substance: AFLIBERCEPT
     Indication: PRODUCT USED FOR UNKNOWN INDICATION
     Route: 031

REACTIONS (7)
  - Eye pain [None]
  - Blindness unilateral [None]
  - Eye haemorrhage [None]
  - Ocular vascular disorder [None]
  - Hospitalisation [None]
  - Eyelid oedema [None]
  - Corneal abrasion [None]

NARRATIVE: CASE EVENT DATE: 20150506
